FAERS Safety Report 6436211-3 (Version None)
Quarter: 2009Q4

REPORT INFORMATION
  Report Type: 
  Country: None (occurrence: None)
  Receive Date: 20091111
  Receipt Date: 20091103
  Transmission Date: 20100525
  Serious: Yes (Life-Threatening, Hospitalization)
  Sender: FDA-Public Use
  Company Number: GB-ROCHE-666610

PATIENT
  Age: 80 Year
  Sex: Female

DRUGS (5)
  1. TAMIFLU [Suspect]
     Indication: DRUG USE FOR UNKNOWN INDICATION
     Route: 065
  2. ASPIRIN [Concomitant]
  3. DIPYRIDAMOLE [Concomitant]
  4. CANDESARTAN CILEXETIL [Concomitant]
  5. PRAVASTATIN SODIUM [Concomitant]

REACTIONS (1)
  - RENAL FAILURE ACUTE [None]
